FAERS Safety Report 21575745 (Version 2)
Quarter: 2023Q2

REPORT INFORMATION
  Report Type: Report from Study
  Country: JP (occurrence: JP)
  Receive Date: 20221110
  Receipt Date: 20230518
  Transmission Date: 20230721
  Serious: Yes (Hospitalization)
  Sender: FDA-Public Use
  Company Number: JP-ABBVIE-18K-087-2222783-00

PATIENT
  Age: 81 Year
  Sex: Male
  Weight: 44 kg

DRUGS (3)
  1. CARBIDOPA\LEVODOPA [Suspect]
     Active Substance: CARBIDOPA\LEVODOPA
     Indication: Parkinson^s disease
     Dosage: MD: 19 ML, CD: 4.5 ML/HR ? 16 HRS, ED: 1 ML/UNIT ? 0
     Route: 050
     Dates: start: 20170609
  2. CARBIDOPA\LEVODOPA [Suspect]
     Active Substance: CARBIDOPA\LEVODOPA
  3. IRON [Concomitant]
     Active Substance: IRON
     Indication: Product used for unknown indication
     Dosage: PREPARATIONS

REACTIONS (17)
  - Fracture [Unknown]
  - On and off phenomenon [Not Recovered/Not Resolved]
  - Eye disorder [Not Recovered/Not Resolved]
  - Fall [Not Recovered/Not Resolved]
  - Fatigue [Recovering/Resolving]
  - Posture abnormal [Not Recovered/Not Resolved]
  - Fall [Not Recovered/Not Resolved]
  - Malaise [Recovered/Resolved]
  - Dyskinesia [Unknown]
  - Movement disorder [Unknown]
  - Malaise [Unknown]
  - Stoma site haemorrhage [Recovered/Resolved]
  - Stoma site discharge [Recovered/Resolved]
  - Medical device site erosion [Unknown]
  - Stoma site erythema [Unknown]
  - Pyrexia [Unknown]
  - Skin wrinkling [Unknown]

NARRATIVE: CASE EVENT DATE: 20180112
